FAERS Safety Report 11226609 (Version 1)
Quarter: 2015Q2

REPORT INFORMATION
  Report Type: Spontaneous
  Country: US (occurrence: US)
  Receive Date: 20150630
  Receipt Date: 20150630
  Transmission Date: 20150821
  Serious: No
  Sender: FDA-Public Use
  Company Number: US-SA-2015SA041416

PATIENT
  Age: 62 Year
  Sex: Female

DRUGS (8)
  1. CANASA [Concomitant]
     Active Substance: MESALAMINE
  2. AUBAGIO [Suspect]
     Active Substance: TERIFLUNOMIDE
     Indication: MULTIPLE SCLEROSIS
     Route: 048
     Dates: start: 20141206
  3. COLACE [Concomitant]
     Active Substance: DOCUSATE SODIUM
  4. CRESTOR [Concomitant]
     Active Substance: ROSUVASTATIN CALCIUM
  5. DELZICOL [Concomitant]
     Active Substance: MESALAMINE
  6. CALCIUM [Concomitant]
     Active Substance: CALCIUM
  7. DITROPAN [Concomitant]
     Active Substance: OXYBUTYNIN CHLORIDE
  8. FISH OIL [Concomitant]
     Active Substance: FISH OIL

REACTIONS (1)
  - Alopecia [Unknown]

NARRATIVE: CASE EVENT DATE: 201502
